FAERS Safety Report 7884042-X (Version None)
Quarter: 2011Q4

REPORT INFORMATION
  Report Type: 
  Country: None (occurrence: None)
  Receive Date: 20111102
  Receipt Date: 20111019
  Transmission Date: 20120403
  Serious: Yes (Other)
  Sender: FDA-Public Use
  Company Number: JP-SANOFI-AVENTIS-2011SA070205

PATIENT

DRUGS (3)
  1. ENDOCRINE THERAPY [Concomitant]
  2. PREDNISOLONE [Suspect]
     Route: 065
  3. DOCETAXEL [Suspect]
     Route: 065

REACTIONS (3)
  - NEUROPATHY PERIPHERAL [None]
  - ABASIA [None]
  - CHEST PAIN [None]
